FAERS Safety Report 10863101 (Version 2)
Quarter: 2015Q3

REPORT INFORMATION
  Report Type: Spontaneous
  Country: US (occurrence: US)
  Receive Date: 20150224
  Receipt Date: 20150811
  Transmission Date: 20151125
  Serious: Yes (Congenital Anomaly, Other)
  Sender: FDA-Public Use
  Company Number: US-APOTEX-2015AP006858

PATIENT

DRUGS (2)
  1. PAXIL [Suspect]
     Active Substance: PAROXETINE HYDROCHLORIDE
     Indication: PRODUCT USED FOR UNKNOWN INDICATION
     Dosage: 30 MG, UNKNOWN
     Route: 064
     Dates: start: 19991014, end: 20000424
  2. BUSPAR [Concomitant]
     Active Substance: BUSPIRONE HYDROCHLORIDE
     Indication: PRODUCT USED FOR UNKNOWN INDICATION
     Route: 064

REACTIONS (8)
  - Atrial septal defect [Unknown]
  - Tricuspid valve incompetence [Unknown]
  - Hyperbilirubinaemia [Recovered/Resolved]
  - Respiratory distress [Recovered/Resolved]
  - Cardiac murmur [Recovered/Resolved]
  - Poor feeding infant [Recovering/Resolving]
  - Premature baby [Unknown]
  - Foetal exposure during pregnancy [Unknown]

NARRATIVE: CASE EVENT DATE: 20000424
